FAERS Safety Report 8326560-6 (Version None)
Quarter: 2012Q2

REPORT INFORMATION
  Report Type: 
  Country: None (occurrence: None)
  Receive Date: 20120501
  Receipt Date: 20110615
  Transmission Date: 20120825
  Serious: No
  Sender: FDA-Public Use
  Company Number: US-SANOFI-AVENTIS-2011SA039966

PATIENT
  Age: 55 Year
  Sex: Female

DRUGS (2)
  1. APIDRA [Suspect]
     Dosage: WAS ON LANTUS FOR 1-2 YEARS, BUT WAS ON APIDRA FOR A COUPLE OF MONTHS BEFORE THAT.
     Route: 058
  2. SOLOSTAR [Suspect]
     Dosage: PRODUCT START DATE MENTIONED AS 1 YEAR
     Dates: start: 20100101

REACTIONS (3)
  - HYPOGLYCAEMIA [None]
  - CONDITION AGGRAVATED [None]
  - VISION BLURRED [None]
